FAERS Safety Report 5364788-8 (Version None)
Quarter: 2007Q2

REPORT INFORMATION
  Report Type: 
  Country: None (occurrence: None)
  Receive Date: 20070530
  Receipt Date: 20070208
  Transmission Date: 20071010
  Serious: No
  Sender: FDA-Public Use
  Company Number: 2006PV011379

PATIENT
  Age: 61 Year
  Sex: Male
  Weight: 117.9352 kg

DRUGS (13)
  1. BYETTA [Suspect]
     Indication: DIABETES MELLITUS NON-INSULIN-DEPENDENT
     Dosage: 10 MCG;BID;SC  5 MCG;BID;SC  5 MCG;BID;SC  5 MCG;BID;SC  10 MCG;BID;SC   ;SC
     Route: 058
     Dates: start: 20060101, end: 20060201
  2. BYETTA [Suspect]
     Indication: DIABETES MELLITUS NON-INSULIN-DEPENDENT
     Dosage: 10 MCG;BID;SC  5 MCG;BID;SC  5 MCG;BID;SC  5 MCG;BID;SC  10 MCG;BID;SC   ;SC
     Route: 058
     Dates: start: 20060201, end: 20060301
  3. BYETTA [Suspect]
     Indication: DIABETES MELLITUS NON-INSULIN-DEPENDENT
     Dosage: 10 MCG;BID;SC  5 MCG;BID;SC  5 MCG;BID;SC  5 MCG;BID;SC  10 MCG;BID;SC   ;SC
     Route: 058
     Dates: start: 20060301, end: 20060401
  4. BYETTA [Suspect]
     Indication: DIABETES MELLITUS NON-INSULIN-DEPENDENT
     Dosage: 10 MCG;BID;SC  5 MCG;BID;SC  5 MCG;BID;SC  5 MCG;BID;SC  10 MCG;BID;SC   ;SC
     Route: 058
     Dates: start: 20060201, end: 20061101
  5. BYETTA [Suspect]
     Indication: DIABETES MELLITUS NON-INSULIN-DEPENDENT
     Dosage: 10 MCG;BID;SC  5 MCG;BID;SC  5 MCG;BID;SC  5 MCG;BID;SC  10 MCG;BID;SC   ;SC
     Route: 058
     Dates: start: 20060412
  6. BYETTA [Suspect]
     Indication: DIABETES MELLITUS NON-INSULIN-DEPENDENT
     Dosage: 10 MCG;BID;SC  5 MCG;BID;SC  5 MCG;BID;SC  5 MCG;BID;SC  10 MCG;BID;SC   ;SC
     Route: 058
     Dates: start: 20070122
  7. BYETTA [Suspect]
  8. ACTOS [Suspect]
     Indication: WEIGHT INCREASED
     Dosage: 45 MG;QD/PO  45 MG;QD;PO  30 MG;QD;PO
     Dates: start: 20050101, end: 20060101
  9. ACTOS [Suspect]
     Indication: WEIGHT INCREASED
     Dosage: 45 MG;QD/PO  45 MG;QD;PO  30 MG;QD;PO
     Dates: start: 20061101, end: 20070122
  10. METFORMIN HCL [Concomitant]
  11. PAXIL [Concomitant]
  12. GLUCOPHAGE [Concomitant]
  13. LANTUS [Concomitant]

REACTIONS (7)
  - BLOOD GLUCOSE INCREASED [None]
  - CONSTIPATION [None]
  - DECREASED APPETITE [None]
  - DRUG INEFFECTIVE [None]
  - DYSPEPSIA [None]
  - NAUSEA [None]
  - WEIGHT INCREASED [None]
